FAERS Safety Report 17179892 (Version 1)
Quarter: 2019Q4

REPORT INFORMATION
  Report Type: Spontaneous
  Country: JP (occurrence: JP)
  Receive Date: 20191219
  Receipt Date: 20191219
  Transmission Date: 20200122
  Serious: Yes (Other)
  Sender: FDA-Public Use
  Company Number: JP-BAYER-2019-224325

PATIENT
  Age: 84 Year
  Sex: Male

DRUGS (3)
  1. ZOMETA [Concomitant]
     Active Substance: ZOLEDRONIC ACID
     Indication: MUSCULOSKELETAL DISORDER PROPHYLAXIS
     Dosage: UNK
     Route: 042
     Dates: start: 20190702, end: 20191029
  2. RANMARK [Concomitant]
     Active Substance: DENOSUMAB
     Indication: MUSCULOSKELETAL DISORDER PROPHYLAXIS
     Dosage: UNK
     Route: 042
     Dates: start: 20190702, end: 20191029
  3. XOFIGO [Suspect]
     Active Substance: RADIUM RA-223 DICHLORIDE
     Indication: HORMONE-REFRACTORY PROSTATE CANCER
     Dosage: UNK
     Route: 042
     Dates: start: 20190709, end: 20191029

REACTIONS (3)
  - Blood alkaline phosphatase increased [Not Recovered/Not Resolved]
  - Hormone-refractory prostate cancer [Not Recovered/Not Resolved]
  - Prostatic specific antigen increased [Not Recovered/Not Resolved]
